FAERS Safety Report 13058797 (Version 1)
Quarter: 2016Q4

REPORT INFORMATION
  Report Type: Spontaneous
  Country: GB (occurrence: GB)
  Receive Date: 20161223
  Receipt Date: 20161223
  Transmission Date: 20170207
  Serious: Yes (Other)
  Sender: FDA-Public Use
  Company Number: US-BRAINTREE LABORATORIES-160878-2

PATIENT
  Age: 63 Year
  Sex: Male

DRUGS (1)
  1. EZICLEN [Suspect]
     Active Substance: MAGNESIUM SULFATE\POTASSIUM SULFATE\SODIUM SULFATE
     Indication: COLONOSCOPY
     Route: 065
     Dates: start: 20161105, end: 20161108

REACTIONS (15)
  - Abdominal discomfort [None]
  - Feeling of despair [None]
  - Hyperchlorhydria [None]
  - Drug ineffective [None]
  - Gastrointestinal hypomotility [None]
  - Nerve injury [None]
  - Condition aggravated [None]
  - Pruritus [None]
  - Gastric hypomotility [None]
  - Feeding disorder [None]
  - Intestinal haemorrhage [None]
  - Gastrointestinal pain [None]
  - Neuropathy peripheral [None]
  - Overdose [None]
  - Muscle disorder [None]
